FAERS Safety Report 5384499-2 (Version None)
Quarter: 2007Q3

REPORT INFORMATION
  Report Type: 
  Country: None (occurrence: None)
  Receive Date: 20070711
  Receipt Date: 20070702
  Transmission Date: 20080115
  Serious: Yes (Other)
  Sender: FDA-Public Use
  Company Number: US-PFIZER INC-2007054984

PATIENT
  Sex: Female

DRUGS (5)
  1. LYRICA [Suspect]
     Indication: NEURALGIA
  2. TRAMADOL HCL [Concomitant]
  3. ORPHENADRINE CITRATE [Concomitant]
  4. VALSARTAN [Concomitant]
  5. ALL OTHER THERAPEUTIC PRODUCTS [Concomitant]

REACTIONS (5)
  - ANOREXIA [None]
  - CHILLS [None]
  - FATIGUE [None]
  - PYREXIA [None]
  - SCOLIOSIS [None]
